FAERS Safety Report 13158269 (Version 1)
Quarter: 2017Q1

REPORT INFORMATION
  Report Type: Spontaneous
  Country: US (occurrence: US)
  Receive Date: 20170127
  Receipt Date: 20170127
  Transmission Date: 20170428
  Serious: Yes (Other)
  Sender: FDA-Public Use
  Company Number: US-BRAINTREE LABORATORIES-170051

PATIENT
  Age: 70 Year
  Sex: Female

DRUGS (1)
  1. NULYTELY [Suspect]
     Active Substance: POLYETHYLENE GLYCOL 3350\POTASSIUM CHLORIDE\SODIUM BICARBONATE\SODIUM CHLORIDE
     Indication: COLONOSCOPY
     Dosage: {1L
     Route: 048

REACTIONS (4)
  - Dyspnoea [None]
  - Tremor [None]
  - Asthenia [None]
  - Heart rate increased [None]
